FAERS Safety Report 8106449-8 (Version None)
Quarter: 2012Q1

REPORT INFORMATION
  Report Type: 
  Country: None (occurrence: None)
  Receive Date: 20120202
  Receipt Date: 20120124
  Transmission Date: 20120608
  Serious: Yes (Death)
  Sender: FDA-Public Use
  Company Number: US-GENZYME-FABR-1002341

PATIENT
  Sex: Male
  Weight: 81 kg

DRUGS (1)
  1. FABRAZYME [Suspect]
     Indication: FABRY'S DISEASE
     Dosage: 0.86 MG/KG, Q2W
     Route: 042
     Dates: start: 20030801

REACTIONS (1)
  - COMA [None]
